FAERS Safety Report 8895290 (Version 2)
Quarter: 2012Q4

REPORT INFORMATION
  Report Type: 
  Country: US (occurrence: US)
  Receive Date: 20121108
  Receipt Date: 20121116
  Transmission Date: 20130627
  Serious: Yes (Death, Hospitalization)
  Sender: FDA-Public Use
  Company Number: US-B.I. PHARMACEUTICALS,INC./RIDGEFIELD-2012-BP-27317BP

PATIENT
  Age: 70 Year
  Sex: Female

DRUGS (7)
  1. PRADAXA [Suspect]
     Indication: ATRIAL FIBRILLATION
     Dosage: 300 mg
     Route: 048
  2. MULTAQ [Concomitant]
  3. SYNTHROID [Concomitant]
  4. ASPIRIN [Concomitant]
     Dosage: 180 mg
  5. METOPROLOL [Concomitant]
  6. STOOL SOFTENERS [Concomitant]
  7. AMIODARONE [Concomitant]
     Dosage: 400 mg

REACTIONS (6)
  - Haemorrhage intracranial [Fatal]
  - Cerebral haemorrhage [Unknown]
  - Hypotension [Unknown]
  - Muscular weakness [Unknown]
  - Nausea [Unknown]
  - Vomiting [Unknown]
